FAERS Safety Report 11690409 (Version 2)
Quarter: 2015Q4

REPORT INFORMATION
  Report Type: Spontaneous
  Country: US (occurrence: US)
  Receive Date: 20151102
  Receipt Date: 20151221
  Transmission Date: 20160304
  Serious: No
  Sender: FDA-Public Use
  Company Number: US-009507513-1510USA011909

PATIENT
  Age: 39 Year
  Sex: Male
  Weight: 95.24 kg

DRUGS (1)
  1. KEYTRUDA [Suspect]
     Active Substance: PEMBROLIZUMAB
     Indication: MALIGNANT MELANOMA
     Dosage: UNK
     Route: 065

REACTIONS (6)
  - Autoimmune uveitis [Unknown]
  - Macular oedema [Unknown]
  - Pulmonary mass [Unknown]
  - Iridocyclitis [Unknown]
  - Herpes simplex [Unknown]
  - Vitritis [Unknown]

NARRATIVE: CASE EVENT DATE: 20151020
